FAERS Safety Report 13862927 (Version 2)
Quarter: 2017Q3

REPORT INFORMATION
  Report Type: Spontaneous
  Country: US (occurrence: US)
  Receive Date: 20170814
  Receipt Date: 20170905
  Transmission Date: 20171127
  Serious: No
  Sender: FDA-Public Use
  Company Number: US-CELGENEUS-USA-20170801952

PATIENT
  Sex: Male
  Weight: 93.98 kg

DRUGS (1)
  1. OTEZLA [Suspect]
     Active Substance: APREMILAST
     Indication: PSORIASIS
     Dosage: 60 MILLIGRAM
     Route: 048
     Dates: start: 20170428, end: 20170601

REACTIONS (2)
  - Headache [Recovered/Resolved]
  - Mood swings [Recovering/Resolving]

NARRATIVE: CASE EVENT DATE: 2017
